FAERS Safety Report 15376343 (Version 2)
Quarter: 2018Q4

REPORT INFORMATION
  Report Type: Report from Study
  Country: DE (occurrence: DE)
  Receive Date: 20180912
  Receipt Date: 20181128
  Transmission Date: 20190204
  Serious: Yes (Life-Threatening, Hospitalization, Other)
  Sender: FDA-Public Use
  Company Number: DE-ASTRAZENECA-2018SF16264

PATIENT
  Age: 19833 Day
  Sex: Female
  Weight: 80 kg

DRUGS (19)
  1. DURVALUMAB. [Suspect]
     Active Substance: DURVALUMAB
     Indication: LUNG NEOPLASM MALIGNANT
     Dosage: 850 MG
     Route: 042
     Dates: start: 20181113
  2. DURVALUMAB. [Suspect]
     Active Substance: DURVALUMAB
     Indication: LUNG NEOPLASM MALIGNANT
     Dosage: 850 MG
     Route: 042
     Dates: start: 20180704
  3. DURVALUMAB. [Suspect]
     Active Substance: DURVALUMAB
     Indication: LUNG NEOPLASM MALIGNANT
     Dosage: 850 MG
     Route: 042
     Dates: start: 20181030
  4. L-THYROXIN [Concomitant]
     Active Substance: LEVOTHYROXINE SODIUM
     Dosage: 75 UG
  5. LANTUS [Concomitant]
     Active Substance: INSULIN GLARGINE
     Dosage: 26 I.E
  6. DURVALUMAB. [Suspect]
     Active Substance: DURVALUMAB
     Indication: LUNG NEOPLASM MALIGNANT
     Dosage: 850 MG
     Route: 042
     Dates: start: 20180904
  7. MACROGOL [Concomitant]
     Active Substance: POLYETHYLENE GLYCOLS
     Dosage: 1 SACHET
  8. DURVALUMAB. [Suspect]
     Active Substance: DURVALUMAB
     Indication: LUNG NEOPLASM MALIGNANT
     Dosage: 850 MG
     Route: 042
     Dates: start: 20180918
  9. DURVALUMAB. [Suspect]
     Active Substance: DURVALUMAB
     Indication: LUNG NEOPLASM MALIGNANT
     Dosage: 850 MG
     Route: 042
     Dates: start: 20181127
  10. HYDROMORPHONE [Concomitant]
     Active Substance: HYDROMORPHONE
     Dosage: 4 MG
  11. PANTOPRAZOL [Concomitant]
     Active Substance: PANTOPRAZOLE SODIUM
     Dosage: 40 MG
  12. INDACATEROL MALEATE [Concomitant]
     Active Substance: INDACATEROL MALEATE
     Dosage: 85/43???G 1 HUB DAILY
  13. DURVALUMAB. [Suspect]
     Active Substance: DURVALUMAB
     Indication: LUNG NEOPLASM MALIGNANT
     Dosage: 850 MG
     Route: 042
     Dates: start: 20180717
  14. ETORICOXIB. [Concomitant]
     Active Substance: ETORICOXIB
  15. DURVALUMAB. [Suspect]
     Active Substance: DURVALUMAB
     Indication: LUNG NEOPLASM MALIGNANT
     Dosage: 850 MG
     Route: 042
     Dates: start: 20180605
  16. DURVALUMAB. [Suspect]
     Active Substance: DURVALUMAB
     Indication: LUNG NEOPLASM MALIGNANT
     Dosage: 850 MG
     Route: 042
     Dates: start: 20180619
  17. DURVALUMAB. [Suspect]
     Active Substance: DURVALUMAB
     Indication: LUNG NEOPLASM MALIGNANT
     Dosage: 850 MG
     Route: 042
     Dates: start: 20181002
  18. HUMALOG [Concomitant]
     Active Substance: INSULIN LISPRO
     Dosage: 24,16,16 I.E. AND AS NEEDED
  19. DURVALUMAB. [Suspect]
     Active Substance: DURVALUMAB
     Indication: LUNG NEOPLASM MALIGNANT
     Dosage: 850 MG
     Route: 042
     Dates: start: 20181016

REACTIONS (10)
  - Type 1 diabetes mellitus [Recovered/Resolved with Sequelae]
  - Type 2 diabetes mellitus [Recovered/Resolved with Sequelae]
  - Vertigo [Unknown]
  - Blood thyroid stimulating hormone increased [Unknown]
  - Influenza like illness [Recovered/Resolved]
  - Nausea [Unknown]
  - Central nervous system lesion [Unknown]
  - Pericardial effusion [Unknown]
  - Vomiting [Unknown]
  - Asthenia [Unknown]

NARRATIVE: CASE EVENT DATE: 20180605
